FAERS Safety Report 12685616 (Version 2)
Quarter: 2016Q3

REPORT INFORMATION
  Report Type: Spontaneous
  Country: US (occurrence: US)
  Receive Date: 20160825
  Receipt Date: 20160830
  Transmission Date: 20161109
  Serious: Yes (Death, Life-Threatening, Hospitalization)
  Sender: FDA-Public Use
  Company Number: US-CELGENEUS-USA-2016085805

PATIENT
  Age: 77 Year
  Sex: Male

DRUGS (41)
  1. DILTIAZEM. [Concomitant]
     Active Substance: DILTIAZEM
     Indication: ATRIAL TACHYCARDIA
     Route: 065
  2. ENOXAPARIN [Concomitant]
     Active Substance: ENOXAPARIN
     Indication: THROMBOSIS PROPHYLAXIS
     Route: 065
  3. FENTANYL. [Concomitant]
     Active Substance: FENTANYL
     Indication: PRODUCT USED FOR UNKNOWN INDICATION
     Route: 065
  4. DEXAMETHASONE ORAL [Suspect]
     Active Substance: DEXAMETHASONE
     Route: 048
     Dates: end: 20160324
  5. AMIODARONE [Concomitant]
     Active Substance: AMIODARONE
     Indication: ATRIAL TACHYCARDIA
     Route: 065
  6. MIDAZOLAM [Concomitant]
     Active Substance: MIDAZOLAM\MIDAZOLAM HYDROCHLORIDE
     Indication: SEDATION
     Route: 065
  7. REVLIMID [Suspect]
     Active Substance: LENALIDOMIDE
     Indication: PLASMA CELL MYELOMA
     Route: 048
     Dates: start: 20160218
  8. OMEPRAZOLE. [Concomitant]
     Active Substance: OMEPRAZOLE
     Indication: PROPHYLAXIS
     Route: 065
  9. LANSOPRAZOLE. [Concomitant]
     Active Substance: LANSOPRAZOLE
     Indication: PROPHYLAXIS
     Dosage: 5 MILLIGRAM
     Route: 065
  10. CALCIUM GLUCONATE. [Concomitant]
     Active Substance: CALCIUM GLUCONATE
     Indication: HYPOCALCAEMIA
     Route: 065
  11. CASPOFUNGIN [Concomitant]
     Active Substance: CASPOFUNGIN
     Indication: LUNG INFECTION
     Route: 065
  12. DEXAMETHASONE ORAL [Suspect]
     Active Substance: DEXAMETHASONE
     Indication: PLASMA CELL MYELOMA
     Route: 048
     Dates: start: 20160218
  13. OXYGEN. [Concomitant]
     Active Substance: OXYGEN
     Indication: PRODUCT USED FOR UNKNOWN INDICATION
     Dosage: 3L-50L
     Route: 045
     Dates: start: 2016
  14. AMIKAN [Concomitant]
     Indication: LUNG INFECTION
     Route: 065
  15. LORAZEPAM. [Concomitant]
     Active Substance: LORAZEPAM
     Indication: ANXIETY
     Route: 065
  16. TRAMADOL. [Concomitant]
     Active Substance: TRAMADOL
     Indication: PRODUCT USED FOR UNKNOWN INDICATION
     Route: 065
  17. REVLIMID [Suspect]
     Active Substance: LENALIDOMIDE
     Route: 048
     Dates: end: 20160329
  18. PRILOSEC [Concomitant]
     Active Substance: OMEPRAZOLE MAGNESIUM
     Indication: DYSPNOEA
     Route: 065
  19. SODIUM CHLORIDE. [Concomitant]
     Active Substance: SODIUM CHLORIDE
     Indication: HYPONATRAEMIA
     Route: 065
  20. DULCOLAX NOS [Concomitant]
     Active Substance: BISACODYL OR DOCUSATE SODIUM
     Indication: CONSTIPATION
     Route: 065
  21. ZOFRAN [Concomitant]
     Active Substance: ONDANSETRON HYDROCHLORIDE
     Indication: PRODUCT USED FOR UNKNOWN INDICATION
     Route: 065
  22. ASPIRIN. [Concomitant]
     Active Substance: ASPIRIN
     Indication: BACK PAIN
     Route: 048
     Dates: start: 20160217
  23. LIDOCAINE. [Concomitant]
     Active Substance: LIDOCAINE
     Indication: PRODUCT USED FOR UNKNOWN INDICATION
     Route: 061
  24. ZOMETA [Concomitant]
     Active Substance: ZOLEDRONIC ACID
     Indication: OSTEOPOROSIS
     Dosage: 1 DOSE
     Route: 041
     Dates: start: 20160225
  25. CISATRACURIUM. [Concomitant]
     Active Substance: CISATRACURIUM
     Indication: PROPHYLAXIS
     Route: 065
  26. ATORVASTATIN [Concomitant]
     Active Substance: ATORVASTATIN
     Indication: HYPERTENSION
     Dosage: 1 DOSE
     Route: 048
     Dates: start: 2005
  27. METHOTREXATE. [Concomitant]
     Active Substance: METHOTREXATE
     Indication: ARTHRITIS
     Dosage: 4 DOSES
     Route: 048
     Dates: start: 2009
  28. FOLIC ACID. [Concomitant]
     Active Substance: FOLIC ACID
     Indication: NUTRITIONAL SUPPLEMENTATION
     Route: 048
     Dates: start: 2009
  29. LEVAQUIN [Concomitant]
     Active Substance: LEVOFLOXACIN
     Indication: HEART RATE
     Dosage: 1 MILLIGRAM
     Route: 065
  30. ALBUTEROL HFA [Concomitant]
     Active Substance: ALBUTEROL SULFATE
     Indication: PRODUCT USED FOR UNKNOWN INDICATION
     Dosage: 2 PUFFS
     Route: 048
  31. ZOSYN [Concomitant]
     Active Substance: PIPERACILLIN SODIUM\TAZOBACTAM SODIUM
     Indication: INFECTION PROPHYLAXIS
     Dosage: 5 MILLIGRAM
     Route: 065
  32. ACETAMINOPHEN. [Concomitant]
     Active Substance: ACETAMINOPHEN
     Indication: BACK PAIN
     Route: 065
  33. MAGNESIUM SULPHATE [Concomitant]
     Active Substance: MAGNESIUM SULFATE
     Indication: HYPOMAGNESAEMIA
     Route: 065
  34. AMLODIPINE [Concomitant]
     Active Substance: AMLODIPINE BESYLATE
     Indication: HYPERTENSION
     Dosage: 1 DOSE
     Route: 065
     Dates: start: 2010
  35. DUONEB [Concomitant]
     Active Substance: ALBUTEROL SULFATE\IPRATROPIUM BROMIDE
     Indication: PRODUCT USED FOR UNKNOWN INDICATION
     Route: 065
  36. METOPROLOL. [Concomitant]
     Active Substance: METOPROLOL
     Indication: ATRIAL TACHYCARDIA
     Route: 065
  37. LEVAQUIN [Concomitant]
     Active Substance: LEVOFLOXACIN
     Indication: DYSPNOEA
     Route: 065
  38. ALBUMIN [Concomitant]
     Active Substance: ALBUMIN HUMAN
     Indication: HYPOTENSION
     Route: 065
  39. NIMBEX [Concomitant]
     Active Substance: CISATRACURIUM BESYLATE
     Indication: PROPHYLAXIS
     Route: 065
  40. KETAMINE [Concomitant]
     Active Substance: KETAMINE
     Indication: SEDATION
     Route: 065
  41. DILAUDID [Concomitant]
     Active Substance: HYDROMORPHONE HYDROCHLORIDE
     Indication: BACK PAIN
     Route: 041
     Dates: start: 20160229

REACTIONS (2)
  - Pulmonary embolism [Fatal]
  - Hypoxia [Not Recovered/Not Resolved]

NARRATIVE: CASE EVENT DATE: 20160328
